FAERS Safety Report 8304842-1 (Version None)
Quarter: 2012Q2

REPORT INFORMATION
  Report Type: 
  Country: None (occurrence: None)
  Receive Date: 20120423
  Receipt Date: 20120411
  Transmission Date: 20120825
  Serious: Yes (Hospitalization, Other)
  Sender: FDA-Public Use
  Company Number: JP-JNJFOC-20120400121

PATIENT
  Age: 86 Year
  Sex: Female

DRUGS (1)
  1. RISPERDAL [Suspect]
     Indication: PRODUCT USED FOR UNKNOWN INDICATION
     Route: 048

REACTIONS (9)
  - PNEUMONIA ASPIRATION [None]
  - ELECTROCARDIOGRAM QT PROLONGED [None]
  - ALTERED STATE OF CONSCIOUSNESS [None]
  - BRADYCARDIA [None]
  - ABULIA [None]
  - CONVULSION [None]
  - HYPOTHERMIA [None]
  - DYSTONIA [None]
  - LACK OF SPONTANEOUS SPEECH [None]
